FAERS Safety Report 10540560 (Version 2)
Quarter: 2014Q4

REPORT INFORMATION
  Report Type: Spontaneous
  Country: FR (occurrence: FR)
  Receive Date: 20141024
  Receipt Date: 20141108
  Transmission Date: 20150529
  Serious: Yes (Hospitalization)
  Sender: FDA-Public Use
  Company Number: FR-ASTRAZENECA-2014SE79385

PATIENT
  Age: 74 Year
  Sex: Male

DRUGS (8)
  1. MABTHERA [Suspect]
     Active Substance: RITUXIMAB
     Indication: GRANULOMATOSIS WITH POLYANGIITIS
     Route: 042
     Dates: start: 20140619, end: 20140703
  2. BACTRIM [Suspect]
     Active Substance: SULFAMETHOXAZOLE\TRIMETHOPRIM
     Indication: HYPOGAMMAGLOBULINAEMIA
     Route: 048
     Dates: start: 20140617, end: 201408
  3. CRESTOR [Suspect]
     Active Substance: ROSUVASTATIN CALCIUM
     Indication: DYSLIPIDAEMIA
     Route: 048
     Dates: start: 20140729, end: 201408
  4. IMOVANE [Concomitant]
     Active Substance: ZOPICLONE
  5. ZELITREX [Suspect]
     Active Substance: VALACYCLOVIR HYDROCHLORIDE
     Indication: HYPOGAMMAGLOBULINAEMIA
     Route: 048
     Dates: start: 20140617, end: 201408
  6. INEXIUM [Concomitant]
     Active Substance: ESOMEPRAZOLE
  7. KARDEGIC [Suspect]
     Active Substance: ASPIRIN LYSINE
     Route: 048
     Dates: start: 20140729, end: 201408
  8. CORTANCYL [Concomitant]
     Active Substance: PREDNISONE

REACTIONS (1)
  - Agranulocytosis [Recovered/Resolved]

NARRATIVE: CASE EVENT DATE: 201408
